FAERS Safety Report 8432696-1 (Version None)
Quarter: 2012Q2

REPORT INFORMATION
  Report Type: 
  Country: None (occurrence: None)
  Receive Date: 20120607
  Receipt Date: 20120524
  Transmission Date: 20120825
  Serious: Yes (Other)
  Sender: FDA-Public Use
  Company Number: 2011P1010934

PATIENT
  Age: 64 Year
  Sex: Female
  Weight: 75.7507 kg

DRUGS (14)
  1. CRESTOR [Concomitant]
  2. WARFARIN SODIUM [Suspect]
     Indication: ATRIAL FIBRILLATION
     Dosage: 5MG; 4 DAYS A WEEK, 7.5 MG; 3 DAYS A WEEK
     Dates: start: 20010101
  3. WARFARIN SODIUM [Suspect]
     Indication: ATRIAL FIBRILLATION
     Dosage: 5MG; 4 DAYS A WEEK, 7.5 MG; 3 DAYS A WEEK
     Dates: start: 20010101
  4. ARIMIDEX [Concomitant]
  5. METFORMIN HCL [Concomitant]
  6. CARTIA XT [Concomitant]
  7. TOPIRAMATE [Concomitant]
  8. GLIMEPIRIDE [Concomitant]
  9. WARFARIN SODIUM [Suspect]
     Indication: ATRIAL FIBRILLATION
     Dosage: 1 MG; 5XW; 1.5 MG; BIW
     Dates: start: 20010101
  10. WARFARIN SODIUM [Suspect]
     Indication: ATRIAL FIBRILLATION
     Dosage: 1 MG; 5XW; 1.5 MG; BIW
     Dates: start: 20010101
  11. OMEPRAZOLE [Concomitant]
  12. SINUS PILL (UNSPECIFIED) [Concomitant]
  13. VESICARE [Concomitant]
  14. SLEEPING PILL (UNSPECIFIED) [Concomitant]

REACTIONS (4)
  - BREAST CANCER FEMALE [None]
  - CONDITION AGGRAVATED [None]
  - URINARY TRACT INFECTION [None]
  - BRONCHITIS CHRONIC [None]
